FAERS Safety Report 23746835 (Version 2)
Quarter: 2024Q2

REPORT INFORMATION
  Report Type: Spontaneous
  Country: US (occurrence: US)
  Receive Date: 20240416
  Receipt Date: 20240423
  Transmission Date: 20240716
  Serious: Yes (Hospitalization)
  Sender: FDA-Public Use
  Company Number: US-AMGEN-USASP2024073939

PATIENT
  Age: 83 Year
  Sex: Female

DRUGS (1)
  1. REPATHA [Suspect]
     Active Substance: EVOLOCUMAB
     Indication: Blood cholesterol abnormal
     Dosage: 140 MILLIGRAM, Q3WK
     Route: 058

REACTIONS (7)
  - Atrial fibrillation [Unknown]
  - Device difficult to use [Unknown]
  - Off label use [Unknown]
  - Accidental exposure to product [Unknown]
  - Wrong technique in product usage process [Unknown]
  - Pain in extremity [Unknown]
  - Fatigue [Unknown]

NARRATIVE: CASE EVENT DATE: 20240325
